FAERS Safety Report 10969966 (Version 1)
Quarter: 2015Q1

REPORT INFORMATION
  Report Type: Spontaneous
  Country: US (occurrence: None)
  Receive Date: 20150330
  Receipt Date: 20150330
  Transmission Date: 20150721
  Serious: Yes (Other)
  Sender: FDA-Public Use
  Company Number: None

PATIENT
  Age: 74 Year
  Sex: Male
  Weight: 115.67 kg

DRUGS (8)
  1. HCTZ [Concomitant]
     Active Substance: HYDROCHLOROTHIAZIDE
  2. TAMSULOSIN [Concomitant]
     Active Substance: TAMSULOSIN
  3. CLARITIN [Concomitant]
     Active Substance: LORATADINE
  4. ZANAFLEX [Suspect]
     Active Substance: TIZANIDINE HYDROCHLORIDE
     Indication: MUSCLE SPASMS
     Dosage: 1 PILL UP TO 3 TIMES/DAY TAKEN BY MOUTH
     Route: 048
     Dates: start: 20150117, end: 20150326
  5. FINASTERIDE. [Concomitant]
     Active Substance: FINASTERIDE
  6. ZANAFLEX [Suspect]
     Active Substance: TIZANIDINE HYDROCHLORIDE
     Indication: NERVE COMPRESSION
     Dosage: 1 PILL UP TO 3 TIMES/DAY TAKEN BY MOUTH
     Route: 048
     Dates: start: 20150117, end: 20150326
  7. LOSARTAN [Concomitant]
     Active Substance: LOSARTAN
  8. MULTIVITAMIN [Concomitant]
     Active Substance: VITAMINS

REACTIONS (1)
  - Amnesia [None]

NARRATIVE: CASE EVENT DATE: 20150327
